FAERS Safety Report 6937441-4 (Version None)
Quarter: 2010Q3

REPORT INFORMATION
  Report Type: 
  Country: None (occurrence: None)
  Receive Date: 20100823
  Receipt Date: 20100818
  Transmission Date: 20110219
  Serious: Yes (Life-Threatening)
  Sender: FDA-Public Use
  Company Number: CA-ABBOTT-10P-028-0664490-00

PATIENT
  Sex: Male
  Weight: 85 kg

DRUGS (1)
  1. HUMIRA [Suspect]
     Indication: PSORIASIS
     Route: 058
     Dates: start: 20090814

REACTIONS (3)
  - LOSS OF CONSCIOUSNESS [None]
  - SYNCOPE [None]
  - VISION BLURRED [None]
